FAERS Safety Report 6786103-5 (Version None)
Quarter: 2010Q2

REPORT INFORMATION
  Report Type: 
  Country: None (occurrence: None)
  Receive Date: 20100623
  Receipt Date: 20100611
  Transmission Date: 20101027
  Serious: Yes (Hospitalization, Disabling, Other)
  Sender: FDA-Public Use
  Company Number: US-SANOFI-AVENTIS-A03200705205

PATIENT
  Age: 62 Year
  Sex: Female
  Weight: 54.4 kg

DRUGS (13)
  1. AMBIEN [Suspect]
     Route: 048
     Dates: start: 20031027, end: 20060101
  2. AMBIEN [Suspect]
     Route: 048
     Dates: start: 20040420, end: 20050101
  3. AMBIEN [Suspect]
     Route: 048
     Dates: start: 19970101
  4. FOSAMAX [Concomitant]
     Dosage: UNIT DOSE: 70 MG
     Route: 048
  5. ALTACE [Concomitant]
     Dosage: UNIT DOSE: 10 MG
     Route: 048
  6. URSO 250 [Concomitant]
     Dosage: UNIT DOSE: 250 MG
     Route: 048
  7. CELEBREX [Concomitant]
     Dosage: UNIT DOSE: 200 MG
     Route: 048
  8. PROGRAF [Concomitant]
     Dosage: UNIT DOSE: 1 MG
     Route: 048
  9. PROGRAF [Concomitant]
     Route: 065
     Dates: start: 20050627
  10. PREDNISONE [Concomitant]
     Indication: LIVER TRANSPLANT
     Dosage: UNIT DOSE: 5 MG
     Route: 048
  11. LOPRESSOR [Concomitant]
     Dosage: UNIT DOSE: 50 MG
     Route: 048
  12. NORVASC [Concomitant]
     Dosage: UNIT DOSE: 10 MG
     Route: 048
     Dates: start: 20040127
  13. CALCIUM CARBONATE [Concomitant]
     Dosage: UNIT DOSE: 10 GR DOSE:10 GRAIN(S)
     Route: 048

REACTIONS (14)
  - AMNESIA [None]
  - CLAVICLE FRACTURE [None]
  - FALL [None]
  - HUMERUS FRACTURE [None]
  - PAIN [None]
  - PRODUCT QUALITY ISSUE [None]
  - RADIAL NERVE PALSY [None]
  - RADIUS FRACTURE [None]
  - SOMNAMBULISM [None]
  - SYNCOPE [None]
  - THORACIC VERTEBRAL FRACTURE [None]
  - TRAUMATIC ARTHRITIS [None]
  - ULNA FRACTURE [None]
  - WRIST FRACTURE [None]
